FAERS Safety Report 7787478-0 (Version None)
Quarter: 2011Q3

REPORT INFORMATION
  Report Type: 
  Country: None (occurrence: None)
  Receive Date: 20110929
  Receipt Date: 20110921
  Transmission Date: 20111222
  Serious: Yes (Hospitalization)
  Sender: FDA-Public Use
  Company Number: JP-ACTELION-A-CH2011-49181

PATIENT
  Sex: Female
  Weight: 76 kg

DRUGS (6)
  1. TRACLEER [Suspect]
     Indication: PULMONARY ARTERIAL HYPERTENSION
     Dosage: 31.25 MG, BID
     Route: 048
     Dates: start: 20060110, end: 20060221
  2. ALLOPURINOL [Concomitant]
  3. OXYGEN [Concomitant]
  4. TRACLEER [Suspect]
     Dosage: UNK
     Route: 048
     Dates: start: 20060222, end: 20060508
  5. CARVEDILOL [Concomitant]
  6. TRAPIDIL [Concomitant]

REACTIONS (2)
  - PULMONARY HAEMORRHAGE [None]
  - SUPPORTIVE CARE [None]
